FAERS Safety Report 22114149 (Version 1)
Quarter: 2023Q1

REPORT INFORMATION
  Report Type: Spontaneous
  Country: US (occurrence: None)
  Receive Date: 20230317
  Receipt Date: 20230317
  Transmission Date: 20230418
  Serious: No
  Sender: FDA-Public Use
  Company Number: None

PATIENT
  Age: 65 Year
  Sex: Female
  Weight: 57.7 kg

DRUGS (13)
  1. CAPECITABINE [Suspect]
     Active Substance: CAPECITABINE
     Indication: Breast cancer female
     Dosage: FREQUENCY : TWICE A DAY;?
     Route: 048
  2. BIOTIN [Concomitant]
  3. CALCIUM [Concomitant]
     Active Substance: CALCIUM
  4. DULOXETINE [Concomitant]
  5. MORPHIN [Concomitant]
  6. ONDANSETRON [Concomitant]
  7. PERCOCET [Concomitant]
  8. PROCHLORPERAZINE [Concomitant]
  9. FISH OIL [Concomitant]
  10. VITAMIN C [Concomitant]
  11. VITAMIN E [Concomitant]
  12. VITAMIN B COMPLEX [Concomitant]
  13. WOMENS MULTIVITAMIN [Concomitant]

REACTIONS (1)
  - Drug intolerance [None]
